FAERS Safety Report 6197384-3 (Version None)
Quarter: 2009Q2

REPORT INFORMATION
  Report Type: 
  Country: None (occurrence: None)
  Receive Date: 20090521
  Receipt Date: 20090512
  Transmission Date: 20091009
  Serious: Yes (Other)
  Sender: FDA-Public Use
  Company Number: PHHY2009AU16632

PATIENT
  Age: 15 Year
  Sex: Male

DRUGS (2)
  1. RITALIN LA [Suspect]
     Route: 048
  2. RITALIN [Suspect]
     Dosage: UNK
     Route: 048
     Dates: end: 20090429

REACTIONS (4)
  - ATTENTION DEFICIT/HYPERACTIVITY DISORDER [None]
  - CYANOSIS [None]
  - PERIPHERAL COLDNESS [None]
  - RAYNAUD'S PHENOMENON [None]
